FAERS Safety Report 6971480-2 (Version None)
Quarter: 2010Q3

REPORT INFORMATION
  Report Type: 
  Country: None (occurrence: None)
  Receive Date: 20100903
  Receipt Date: 20100825
  Transmission Date: 20110219
  Serious: Yes (Hospitalization, Other)
  Sender: FDA-Public Use
  Company Number: 2010US003201

PATIENT
  Age: 55 Year
  Sex: Male

DRUGS (18)
  1. PROGRAF [Suspect]
     Indication: RENAL TRANSPLANT
     Dosage: 0.5 MG, UID/QD, ORAL
     Route: 048
     Dates: start: 20090420
  2. CIPRO [Suspect]
     Indication: URINARY TRACT INFECTION
  3. TAMSULOSIN (TAMSULOSIN) CAPSULE [Concomitant]
  4. NORVASC [Concomitant]
  5. ROCALTROL [Concomitant]
  6. CLONIDINE [Concomitant]
  7. FLONASE [Concomitant]
  8. HYDRALAZINE HCL [Concomitant]
  9. MEGACE [Concomitant]
  10. METOPROLOL SUCCINATE [Concomitant]
  11. MYFORTIC [Concomitant]
  12. PRILOSEC (OMEPRAZOLE) [Concomitant]
  13. PREDNISONE [Concomitant]
  14. ZOCOR [Concomitant]
  15. JANUVIA [Concomitant]
  16. BACTRIM DS [Concomitant]
  17. VANCOMYCIN [Concomitant]
  18. COUMADIN [Concomitant]

REACTIONS (7)
  - BLASTOMYCOSIS [None]
  - CLOSTRIDIUM DIFFICILE COLITIS [None]
  - FALL [None]
  - HIP FRACTURE [None]
  - LUNG NEOPLASM [None]
  - PNEUMONIA BACTERIAL [None]
  - URINARY TRACT INFECTION [None]
